FAERS Safety Report 9345569 (Version 1)
Quarter: 2013Q2

REPORT INFORMATION
  Report Type: Spontaneous
  Country: FR (occurrence: FR)
  Receive Date: 20130613
  Receipt Date: 20130613
  Transmission Date: 20140414
  Serious: Yes (Hospitalization)
  Sender: FDA-Public Use
  Company Number: FR-ROCHE-1235986

PATIENT
  Age: 88 Year
  Sex: Female

DRUGS (3)
  1. TAMIFLU [Suspect]
     Indication: INFLUENZA
     Route: 048
     Dates: start: 20130326, end: 20130327
  2. CEFTRIAXONE [Suspect]
     Indication: PNEUMONIA
     Route: 058
     Dates: start: 20130324, end: 20130327
  3. RULID [Suspect]
     Indication: PNEUMONIA
     Route: 048
     Dates: start: 20130325, end: 20130327

REACTIONS (1)
  - Agranulocytosis [Recovered/Resolved]
